FAERS Safety Report 9090284 (Version 1)
Quarter: 2013Q1

REPORT INFORMATION
  Report Type: Report from Study
  Country: US (occurrence: US)
  Receive Date: 20130131
  Receipt Date: 20130131
  Transmission Date: 20140127
  Serious: No
  Sender: FDA-Public Use
  Company Number: US-ABBOTT-12P-163-1011493-00

PATIENT
  Age: 24 Year
  Sex: Male

DRUGS (4)
  1. HUMIRA [Suspect]
     Indication: PSORIASIS
     Route: 058
     Dates: start: 20121119, end: 20121119
  2. HUMIRA [Suspect]
     Route: 058
  3. LAMOTRIGINE [Concomitant]
     Indication: BIPOLAR DISORDER
     Dosage: 300MG DAILY
  4. PROAIR [Concomitant]
     Indication: ASTHMA

REACTIONS (2)
  - Arthralgia [Not Recovered/Not Resolved]
  - Myalgia [Not Recovered/Not Resolved]
